FAERS Safety Report 6342067-X (Version None)
Quarter: 2009Q3

REPORT INFORMATION
  Report Type: 
  Country: None (occurrence: None)
  Receive Date: 20090903
  Receipt Date: 20090819
  Transmission Date: 20100115
  Serious: Yes (Disabling)
  Sender: FDA-Public Use
  Company Number: AUR-APL-2009-00467

PATIENT

DRUGS (1)
  1. SIMVASTATIN [Suspect]
     Indication: HYPERCHOLESTEROLAEMIA
     Dosage: 20MG - ORAL
     Route: 048
     Dates: start: 20050301, end: 20090401

REACTIONS (2)
  - RESTLESSNESS [None]
  - SLEEP DISORDER [None]
